FAERS Safety Report 4919693-5 (Version None)
Quarter: 2006Q1

REPORT INFORMATION
  Report Type: 
  Country: None (occurrence: None)
  Receive Date: 20060221
  Receipt Date: 20060209
  Transmission Date: 20060701
  Serious: Yes (Other)
  Sender: FDA-Public Use
  Company Number: 2006021351

PATIENT
  Age: 34 Year
  Sex: Female

DRUGS (1)
  1. DIABINESE [Suspect]
     Indication: DIABETES MELLITUS
     Dosage: 125 MG (250 MG, 1 IN 1 D), ORAL
     Route: 048
     Dates: start: 20060201

REACTIONS (5)
  - DIZZINESS [None]
  - ERYTHEMA [None]
  - FEELING HOT [None]
  - SENSATION OF HEAVINESS [None]
  - URINARY TRACT INFECTION [None]
